FAERS Safety Report 6241613-4 (Version None)
Quarter: 2009Q2

REPORT INFORMATION
  Report Type: 
  Country: None (occurrence: None)
  Receive Date: 20090623
  Receipt Date: 20041114
  Transmission Date: 20091009
  Serious: Yes (Hospitalization)
  Sender: FDA-Public Use
  Company Number: ES-ROCHE-403954

PATIENT
  Sex: Male
  Weight: 84 kg

DRUGS (27)
  1. DACLIZUMAB [Suspect]
     Dosage: BASELINE VISIT
     Route: 042
     Dates: start: 20040301
  2. DACLIZUMAB [Suspect]
     Dosage: FREQUENCY PER PROTOCOL
     Route: 042
     Dates: start: 20040315, end: 20040426
  3. MYCOPHENOLATE MOFETIL [Suspect]
     Dosage: DRUG NAME: MOFETIL MICOPHENOLATE
     Route: 048
     Dates: start: 20040301
  4. MYCOPHENOLATE MOFETIL [Suspect]
     Route: 048
     Dates: start: 20040302
  5. MYCOPHENOLATE MOFETIL [Suspect]
     Route: 048
     Dates: start: 20041011
  6. TACROLIMUS [Suspect]
     Route: 048
     Dates: start: 20040301, end: 20040307
  7. TACROLIMUS [Suspect]
     Route: 048
     Dates: start: 20040319, end: 20040406
  8. TACROLIMUS [Suspect]
     Route: 048
     Dates: start: 20040407, end: 20040414
  9. TACROLIMUS [Suspect]
     Route: 048
     Dates: start: 20040415, end: 20040523
  10. TACROLIMUS [Suspect]
     Route: 048
     Dates: start: 20040524, end: 20041101
  11. TACROLIMUS [Suspect]
     Route: 048
     Dates: start: 20040308, end: 20040318
  12. TACROLIMUS [Suspect]
     Route: 048
     Dates: start: 20041102
  13. TACROLIMUS [Suspect]
     Route: 048
     Dates: start: 20060116
  14. PREDNISONE [Suspect]
     Dosage: FORMULATION: VIAL
     Route: 042
     Dates: start: 20040302, end: 20040302
  15. PREDNISONE [Suspect]
     Route: 048
     Dates: start: 20040303, end: 20040303
  16. PREDNISONE [Suspect]
     Route: 048
     Dates: start: 20040401, end: 20040502
  17. PREDNISONE [Suspect]
     Route: 048
     Dates: start: 20040503, end: 20040929
  18. PREDNISONE [Suspect]
     Route: 048
     Dates: start: 20040930
  19. METHYLPREDNISOLONE [Suspect]
     Dosage: DRUG NAME: METHILPREDNISOLONE FORMULATION: VIAL
     Route: 042
     Dates: start: 20040301, end: 20040302
  20. RANITIDINE [Concomitant]
     Dates: start: 20040301
  21. AMLODIPINE [Concomitant]
     Route: 048
     Dates: start: 20040322
  22. CEFTRIAXONE [Concomitant]
     Dosage: FORMULATION: VIAL
     Route: 042
     Dates: start: 20040301, end: 20040304
  23. GANCICLOVIR [Concomitant]
     Dosage: DRUG NAME: GANCYCLOVIR
     Route: 048
     Dates: start: 20040325, end: 20040503
  24. ERYTHROPOIETIN HUMAN [Concomitant]
     Dosage: DRUG NAME: HUMAN RECOMBINANT ERYTROPOYETINE FORMULATION: VIAL
     Route: 058
     Dates: start: 20040819, end: 20040916
  25. LOSARTAN POTASSIUM [Concomitant]
     Route: 048
     Dates: start: 20040429
  26. TRIMETHOPRIM + SULFAMETHOXAZOLE [Concomitant]
     Dosage: DRUG NAME: THRIMETOPRIM-SULFAMETOXASOLE
     Route: 048
     Dates: start: 20040302, end: 20040503
  27. VALGANCICLOVIR HCL [Concomitant]
     Dosage: DRUG NAME: VALGANCYCLOVIR.
     Route: 048
     Dates: start: 20040302, end: 20040324

REACTIONS (1)
  - HERPES ZOSTER [None]
